FAERS Safety Report 14270708 (Version 1)
Quarter: 2017Q4

REPORT INFORMATION
  Report Type: Spontaneous
  Country: JP (occurrence: JP)
  Receive Date: 20171211
  Receipt Date: 20171211
  Transmission Date: 20180321
  Serious: Yes (Death)
  Sender: FDA-Public Use
  Company Number: JP-OTSUKA-BJ20093869

PATIENT
  Age: 49 Year
  Sex: Male

DRUGS (17)
  1. LORAZEPAM. [Concomitant]
     Active Substance: LORAZEPAM
     Indication: PRODUCT USED FOR UNKNOWN INDICATION
     Dosage: 0.5 MG, UNK
     Route: 065
     Dates: start: 20080902, end: 20090824
  2. ANAFRANIL [Suspect]
     Active Substance: CLOMIPRAMINE HYDROCHLORIDE
     Indication: ENURESIS
     Dosage: 20 MG, SINGLE
     Route: 048
     Dates: start: 20090819, end: 20090824
  3. ASCOMARNA [Concomitant]
     Indication: SCHIZOPHRENIA
     Dosage: 0.5 MG, DAILY DOSE
     Route: 048
     Dates: start: 1998, end: 20090824
  4. U PAN [Concomitant]
     Active Substance: LORAZEPAM
     Indication: SCHIZOPHRENIA
     Dosage: 1 MG, TID
     Route: 048
     Dates: start: 20080902, end: 20090824
  5. SENNA [Concomitant]
     Active Substance: SENNA LEAF\SENNOSIDES\SENNOSIDES A AND B
     Indication: PRODUCT USED FOR UNKNOWN INDICATION
     Dosage: 12 MG, UNK
     Route: 065
     Dates: start: 1988, end: 20090824
  6. LEVOMEPROMAZINE [Suspect]
     Active Substance: LEVOMEPROMAZINE
     Indication: SCHIZOPHRENIA
     Dosage: 150 MG, QD (TABLET 50MG)
     Route: 048
     Dates: start: 1988, end: 20090824
  7. STOBRUN [Concomitant]
     Indication: PARKINSONISM
     Dosage: 2 MG, TID
     Route: 048
     Dates: start: 1997, end: 20090824
  8. BIBITTOACE [Concomitant]
     Active Substance: FLUNITRAZEPAM
     Indication: SCHIZOPHRENIA
     Dosage: 2 MG, DAILY DOSE
     Route: 048
     Dates: start: 20090714, end: 20090824
  9. ABILIFY [Suspect]
     Active Substance: ARIPIPRAZOLE
     Indication: SCHIZOPHRENIA
     Dosage: 6 MG, BID
     Route: 048
     Dates: start: 20090728, end: 20090810
  10. LEMONAMIN [Suspect]
     Active Substance: HALOPERIDOL
     Indication: SCHIZOPHRENIA
     Dosage: 18 MG, DAILY DOSE
     Route: 048
     Dates: start: 1988, end: 20090824
  11. SENNAL [Concomitant]
     Indication: CONSTIPATION
     Dosage: 12 MG, DAILY DOSE
     Route: 048
     Dates: start: 1988, end: 20090824
  12. ABILIFY [Suspect]
     Active Substance: ARIPIPRAZOLE
     Dosage: 12 MG, BID
     Route: 048
     Dates: start: 20090811, end: 20090824
  13. TRIAZOLAM. [Concomitant]
     Active Substance: TRIAZOLAM
     Indication: PRODUCT USED FOR UNKNOWN INDICATION
     Dosage: 0.25 MG, UNK
     Route: 065
     Dates: start: 1998, end: 20090824
  14. SOFMIN [Suspect]
     Active Substance: LEVOMEPROMAZINE MALEATE
     Indication: SCHIZOPHRENIA
     Dosage: 150 MG, SINGLE  (DAILY DOSE)
     Route: 048
     Dates: start: 1988, end: 20090824
  15. LULLAN [Suspect]
     Active Substance: PEROSPIRONE HYDROCHLORIDE
     Indication: SCHIZOPHRENIA
     Dosage: 16 MG, TID
     Route: 048
     Dates: start: 20030828, end: 20090824
  16. HALOPERIDOL. [Suspect]
     Active Substance: HALOPERIDOL
     Indication: SCHIZOPHRENIA
     Dosage: 18 MG, QD (TAKEN AS TABS 3MG)
     Route: 048
     Dates: start: 1988, end: 20090824
  17. FLUNITRAZEPAM [Concomitant]
     Active Substance: FLUNITRAZEPAM
     Indication: PRODUCT USED FOR UNKNOWN INDICATION
     Dosage: 1 MG, UNK
     Route: 065
     Dates: start: 20090714, end: 20090824

REACTIONS (1)
  - Cardiac failure acute [Fatal]

NARRATIVE: CASE EVENT DATE: 20090825
